FAERS Safety Report 13255504 (Version 1)
Quarter: 2017Q1

REPORT INFORMATION
  Report Type: Spontaneous
  Country: CN (occurrence: CN)
  Receive Date: 20170221
  Receipt Date: 20170221
  Transmission Date: 20170428
  Serious: Yes (Other)
  Sender: FDA-Public Use
  Company Number: CN-ELI_LILLY_AND_COMPANY-CN201702007016

PATIENT
  Age: 67 Year
  Sex: Female

DRUGS (2)
  1. SEDIL /00017001/ [Suspect]
     Active Substance: DIAZEPAM
     Indication: SCHIZOPHRENIA
     Dosage: 20 MG, TID
     Route: 048
     Dates: start: 20161013
  2. OLANZAPINE. [Suspect]
     Active Substance: OLANZAPINE
     Indication: SCHIZOPHRENIA
     Dosage: 7.5 MG, BID
     Route: 048
     Dates: start: 20161013

REACTIONS (3)
  - White blood cell count decreased [Recovering/Resolving]
  - Total bile acids increased [Recovering/Resolving]
  - Blood bilirubin increased [Recovering/Resolving]

NARRATIVE: CASE EVENT DATE: 20161019
